FAERS Safety Report 12271566 (Version 2)
Quarter: 2016Q3

REPORT INFORMATION
  Report Type: Spontaneous
  Country: US (occurrence: US)
  Receive Date: 20160415
  Receipt Date: 20160713
  Transmission Date: 20161109
  Serious: Yes (Other)
  Sender: FDA-Public Use
  Company Number: US-NOVOPROD-476912

PATIENT
  Age: 46 Year
  Sex: Male
  Weight: 66.21 kg

DRUGS (3)
  1. PHENTERMINE. [Concomitant]
     Active Substance: PHENTERMINE
     Indication: WEIGHT CONTROL
     Dosage: 37.5 MG, QD IN AM
  2. DIETHYLPROPION [Concomitant]
     Active Substance: DIETHYLPROPION
     Indication: WEIGHT CONTROL
     Dosage: 75 MG, QD (MID PM)
  3. SAXENDA [Suspect]
     Active Substance: LIRAGLUTIDE
     Indication: WEIGHT CONTROL
     Dosage: 0.6 MG, QD
     Route: 058
     Dates: start: 20151119, end: 20151126

REACTIONS (2)
  - Pancreatitis [Recovered/Resolved]
  - Urticaria [Recovered/Resolved]

NARRATIVE: CASE EVENT DATE: 201511
